FAERS Safety Report 5077253-2 (Version None)
Quarter: 2006Q3

REPORT INFORMATION
  Report Type: 
  Country: None (occurrence: None)
  Receive Date: 20060810
  Receipt Date: 20060112
  Transmission Date: 20061208
  Serious: No
  Sender: FDA-Public Use
  Company Number: US-GLAXOSMITHKLINE-A0589023A

PATIENT
  Age: 56 Year
  Sex: Female

DRUGS (5)
  1. PAXIL [Suspect]
     Indication: DEPRESSION
     Dosage: 20MG PER DAY
     Route: 048
     Dates: start: 20050101
  2. PAXIL [Suspect]
     Dosage: 50MG PER DAY
     Route: 048
     Dates: start: 20050101
  3. TOPROL-XL [Concomitant]
  4. PRAVACHOL [Concomitant]
  5. DYAZIDE [Concomitant]

REACTIONS (1)
  - DRUG INEFFECTIVE [None]
